FAERS Safety Report 21727354 (Version 1)
Quarter: 2022Q4

REPORT INFORMATION
  Report Type: Report from Study
  Country: US (occurrence: US)
  Receive Date: 20221214
  Receipt Date: 20221214
  Transmission Date: 20230112
  Serious: No
  Sender: FDA-Public Use
  Company Number: US-002147023-NVSC2022US288774

PATIENT
  Sex: Male

DRUGS (1)
  1. OMNITROPE [Suspect]
     Active Substance: SOMATROPIN
     Indication: Product used for unknown indication
     Dosage: UNK
     Route: 065

REACTIONS (8)
  - Pain [Unknown]
  - Nightmare [Unknown]
  - Device breakage [Unknown]
  - Device failure [Unknown]
  - Device leakage [Unknown]
  - Product temperature excursion issue [Unknown]
  - Product supply issue [Unknown]
  - Drug dose omission by device [Unknown]
